FAERS Safety Report 5455346-5 (Version None)
Quarter: 2007Q3

REPORT INFORMATION
  Report Type: 
  Country: None (occurrence: None)
  Receive Date: 20070918
  Receipt Date: 20070913
  Transmission Date: 20080115
  Serious: Yes (Hospitalization)
  Sender: FDA-Public Use
  Company Number: JP-BRISTOL-MYERS SQUIBB COMPANY-13726849

PATIENT
  Age: 57 Year
  Sex: Female

DRUGS (8)
  1. TAXOL [Suspect]
     Indication: LUNG NEOPLASM MALIGNANT
     Dosage: ON 06-MAY-2006, 1ST CHEMOTHERPAY WITH TAXOL WAS INITIATED.
     Route: 041
     Dates: start: 20061221, end: 20061221
  2. PARAPLATIN [Suspect]
     Indication: LUNG NEOPLASM MALIGNANT
     Route: 041
  3. RINDERON [Concomitant]
     Dates: start: 20060601
  4. FAMOTIDINE [Concomitant]
     Route: 048
     Dates: start: 20060601
  5. DECADRON [Concomitant]
     Route: 041
     Dates: start: 20061221, end: 20061221
  6. GASPORT [Concomitant]
     Route: 041
     Dates: start: 20061221, end: 20061221
  7. VENA [Concomitant]
     Route: 048
     Dates: start: 20061221, end: 20061221
  8. IRESSA [Concomitant]
     Dates: start: 20060530, end: 20061220

REACTIONS (1)
  - ANAPHYLACTIC SHOCK [None]
